FAERS Safety Report 8308322-9 (Version None)
Quarter: 2012Q2

REPORT INFORMATION
  Report Type: 
  Country: None (occurrence: None)
  Receive Date: 20120424
  Receipt Date: 20120417
  Transmission Date: 20120825
  Serious: Yes (Other)
  Sender: FDA-Public Use
  Company Number: IT-PFIZER INC-2012096219

PATIENT
  Age: 68 Year
  Sex: Female

DRUGS (3)
  1. CYTARABINE [Suspect]
     Indication: CENTRAL NERVOUS SYSTEM LYMPHOMA
  2. TEMOZOLOMIDE [Suspect]
     Indication: CENTRAL NERVOUS SYSTEM LYMPHOMA
     Dosage: 100 MG/MS D 1-5
  3. METHOTREXATE [Suspect]
     Indication: CENTRAL NERVOUS SYSTEM LYMPHOMA
     Dosage: 3G/MS D 1, 10, 20
     Route: 042

REACTIONS (2)
  - ATRIAL FIBRILLATION [None]
  - CAUDA EQUINA SYNDROME [None]
